FAERS Safety Report 15886222 (Version 1)
Quarter: 2019Q1

REPORT INFORMATION
  Report Type: Spontaneous
  Country: DE (occurrence: DE)
  Receive Date: 20190129
  Receipt Date: 20190129
  Transmission Date: 20190417
  Serious: Yes (Other)
  Sender: FDA-Public Use
  Company Number: DE-PFM-2019-01042

PATIENT

DRUGS (6)
  1. CISPLATIN. [Suspect]
     Active Substance: CISPLATIN
     Indication: NON-SMALL CELL LUNG CANCER
     Dosage: CYCLICAL
     Dates: start: 201202, end: 201204
  2. XALKORI [Suspect]
     Active Substance: CRIZOTINIB
     Dosage: 250 MG, QD (1/DAY)
     Route: 048
  3. XALKORI [Suspect]
     Active Substance: CRIZOTINIB
     Indication: NON-SMALL CELL LUNG CANCER RECURRENT
     Dosage: 250 MG, BID (2/DAY)
     Route: 048
     Dates: start: 20170713, end: 20170713
  4. XALKORI [Suspect]
     Active Substance: CRIZOTINIB
     Dosage: 200 MG, BID (2/DAY)
     Route: 048
  5. VIGANTOL [Concomitant]
     Active Substance: CHOLECALCIFEROL
     Indication: VITAMIN D DEFICIENCY
     Dosage: 20 000 IU, UNK
     Dates: start: 20180717
  6. VINORELBINE [Suspect]
     Active Substance: VINORELBINE\VINORELBINE TARTRATE
     Indication: NON-SMALL CELL LUNG CANCER
     Dosage: CYCLICAL
     Dates: start: 201202, end: 201204

REACTIONS (4)
  - Bradycardia [Recovered/Resolved]
  - Polyneuropathy [Unknown]
  - Adverse event [Recovered/Resolved]
  - Generalised oedema [Recovering/Resolving]

NARRATIVE: CASE EVENT DATE: 20170727
